FAERS Safety Report 16015797 (Version 1)
Quarter: 2019Q1

REPORT INFORMATION
  Report Type: Spontaneous
  Country: JP (occurrence: JP)
  Receive Date: 20190228
  Receipt Date: 20190228
  Transmission Date: 20190418
  Serious: Yes (Other)
  Sender: FDA-Public Use
  Company Number: JP-GLAXOSMITHKLINE-JP2019JPN029392

PATIENT
  Age: 54 Year
  Sex: Female

DRUGS (1)
  1. RELENZA [Suspect]
     Active Substance: ZANAMIVIR
     Indication: INFLUENZA
     Dosage: 10 MG, BID
     Route: 055
     Dates: start: 20190212, end: 20190216

REACTIONS (6)
  - Arthralgia [Unknown]
  - Condition aggravated [Unknown]
  - Hypothermia [Not Recovered/Not Resolved]
  - Accidental underdose [Unknown]
  - Peripheral coldness [Unknown]
  - Therapy cessation [Unknown]

NARRATIVE: CASE EVENT DATE: 201902
